FAERS Safety Report 5063618-1 (Version None)
Quarter: 2006Q3

REPORT INFORMATION
  Report Type: 
  Country: None (occurrence: None)
  Receive Date: 20060724
  Receipt Date: 20060731
  Transmission Date: 20061208
  Serious: Yes (Disabling)
  Sender: FDA-Public Use
  Company Number: HQWYE882813JUL06

PATIENT
  Sex: Female

DRUGS (3)
  1. PANTOPRAZOLE SODIUM [Suspect]
     Indication: HELICOBACTER INFECTION
     Dosage: 40 MG 2X PER 1 DAY ORAL
     Route: 048
     Dates: start: 20040101
  2. AMOXICILLIN [Suspect]
     Dosage: 1000 MG 2X PER 1 DAY ORAL
     Route: 048
     Dates: start: 20040101
  3. CLARITHROMYCIN [Suspect]
     Indication: HELICOBACTER INFECTION
     Dosage: 500 MGG 2X PER 1 DAY ORAL
     Route: 048
     Dates: start: 20040101

REACTIONS (2)
  - HYPOACUSIS [None]
  - TINNITUS [None]
